FAERS Safety Report 17407377 (Version 1)
Quarter: 2020Q1

REPORT INFORMATION
  Report Type: Spontaneous
  Country: US (occurrence: US)
  Receive Date: 20200212
  Receipt Date: 20200212
  Transmission Date: 20200409
  Serious: Yes (Other)
  Sender: FDA-Public Use
  Company Number: US-STRIDES ARCOLAB LIMITED-2020SP001296

PATIENT
  Age: 64 Year
  Sex: Male

DRUGS (6)
  1. TACROLIMUS. [Interacting]
     Active Substance: TACROLIMUS
     Dosage: 1 MILLIGRAM, EVERY MORNING
     Route: 065
  2. TACROLIMUS. [Suspect]
     Active Substance: TACROLIMUS
     Indication: LIVER TRANSPLANT
     Dosage: UNK
     Route: 065
  3. ABACAVIR W/DOLUTEGRAVIR/LAMIVUDINE [Interacting]
     Active Substance: ABACAVIR SULFATE\DOLUTEGRAVIR SODIUM\LAMIVUDINE
     Indication: HIV INFECTION
     Dosage: UNK
     Route: 065
  4. COBICISTAT W/DARUNAVIR [Interacting]
     Active Substance: COBICISTAT\DARUNAVIR ETHANOLATE
     Indication: HIV INFECTION
     Dosage: UNK
     Route: 065
  5. TACROLIMUS. [Interacting]
     Active Substance: TACROLIMUS
     Indication: IMMUNOSUPPRESSANT DRUG THERAPY
     Dosage: DOSE OF TACROLIMUS WAS CONSISTENTLY CHANGED AND EVENTUALLY SET TO 0.4MG EVERY 72H
     Route: 065
  6. TACROLIMUS. [Interacting]
     Active Substance: TACROLIMUS
     Dosage: 0.5 MILLIGRAM IN THE EVENING
     Route: 065

REACTIONS (1)
  - Drug interaction [Unknown]
